FAERS Safety Report 4691289-2 (Version None)
Quarter: 2005Q2

REPORT INFORMATION
  Report Type: 
  Country: None (occurrence: None)
  Receive Date: 20050610
  Receipt Date: 20050601
  Transmission Date: 20051028
  Serious: Yes (Other)
  Sender: FDA-Public Use
  Company Number: HQWYE130802JUN05

PATIENT
  Age: 51 Year
  Sex: Female
  Weight: 81.72 kg

DRUGS (2)
  1. OVRAL [Suspect]
     Indication: ORAL CONTRACEPTION
     Dosage: 1 TABLET 1 X PER 1 DAY, ORAL
     Route: 048
     Dates: start: 19720101, end: 20040612
  2. INFLUENZA VIRUS VACCINE (INFLUENZA VIRUS VACCINE POLYVALENT) [Suspect]

REACTIONS (5)
  - ARTHRALGIA [None]
  - BLOOD OESTROGEN INCREASED [None]
  - GUILLAIN-BARRE SYNDROME [None]
  - PAIN IN EXTREMITY [None]
  - PROGESTERONE DECREASED [None]
